FAERS Safety Report 9890010 (Version 1)
Quarter: 2014Q1

REPORT INFORMATION
  Report Type: Spontaneous
  Country: US (occurrence: US)
  Receive Date: 20140212
  Receipt Date: 20140212
  Transmission Date: 20141002
  Serious: No
  Sender: FDA-Public Use
  Company Number: US-BIOGENIDEC-2014BI010910

PATIENT
  Age: 41 Year
  Sex: Female

DRUGS (9)
  1. TECFIDERA [Suspect]
     Indication: MULTIPLE SCLEROSIS
     Route: 048
  2. AMPYRA [Concomitant]
  3. COZAAR [Concomitant]
  4. FLEXERIL [Concomitant]
  5. GABAPENTIN [Concomitant]
  6. LIPITOR [Concomitant]
  7. MYRBETRIQ [Concomitant]
  8. VIIBRYD [Concomitant]
  9. ZYRTEC ALLERGY [Concomitant]

REACTIONS (2)
  - Vision blurred [Unknown]
  - Balance disorder [Unknown]
